FAERS Safety Report 7428376-1 (Version None)
Quarter: 2011Q2

REPORT INFORMATION
  Report Type: 
  Country: None (occurrence: None)
  Receive Date: 20110412
  Receipt Date: 20110407
  Transmission Date: 20111010
  Serious: Yes (Hospitalization)
  Sender: FDA-Public Use
  Company Number: WAES 1104DEU00026

PATIENT
  Age: 67 Year
  Sex: Female

DRUGS (1)
  1. CAP VORINOSTAT [Suspect]
     Indication: SARCOMA METASTATIC
     Dosage: 400 MG DAILY, PO
     Route: 048
     Dates: start: 20110322, end: 20110331

REACTIONS (2)
  - GENERAL PHYSICAL HEALTH DETERIORATION [None]
  - FEBRILE INFECTION [None]
